FAERS Safety Report 9536942 (Version 1)
Quarter: 2013Q3

REPORT INFORMATION
  Report Type: Spontaneous
  Country: US (occurrence: None)
  Receive Date: 20130918
  Receipt Date: 20130918
  Transmission Date: 20140515
  Serious: Yes (Life-Threatening)
  Sender: FDA-Public Use
  Company Number: None

PATIENT
  Age: 57 Year
  Sex: Female
  Weight: 65 kg

DRUGS (4)
  1. BENZONATATE [Suspect]
     Indication: COUGH
     Dosage: 100 MG PRN/AS NEEDED ORAL
     Route: 048
     Dates: end: 20110605
  2. HEPARIN [Concomitant]
  3. TRIAMCINOLONE [Concomitant]
  4. FUROSEMIDE [Concomitant]

REACTIONS (4)
  - Hypoaesthesia [None]
  - Pharyngeal oedema [None]
  - Dyspnoea [None]
  - Drug hypersensitivity [None]
